FAERS Safety Report 8993608 (Version 2)
Quarter: 2014Q1

REPORT INFORMATION
  Report Type: Spontaneous
  Country: DK (occurrence: DK)
  Receive Date: 20130102
  Receipt Date: 20140102
  Transmission Date: 20141002
  Serious: Yes (Other)
  Sender: FDA-Public Use
  Company Number: DK-WATSON-2012-22881

PATIENT
  Age: 53 Year
  Sex: Male

DRUGS (8)
  1. GABAPENTIN (UNKNOWN) [Suspect]
     Indication: EPILEPSY
     Dosage: UNK
     Route: 065
  2. TRILEPTAL [Suspect]
     Indication: EPILEPSY
     Dosage: UNK; GRADUALLY WITHDRAWN SINCE DECEMBER 2003
     Route: 065
  3. DELEPSINE [Suspect]
     Indication: EPILEPSY
     Dosage: 1500 MG, DAILY
     Route: 065
  4. DELEPSINE [Suspect]
     Dosage: 100 MG, UNK
     Route: 065
     Dates: start: 200302
  5. LAMICTAL [Suspect]
     Indication: EPILEPSY
     Dosage: UNK
     Route: 065
     Dates: start: 20060829, end: 201106
  6. SIMVASTATIN [Concomitant]
     Indication: PRODUCT USED FOR UNKNOWN INDICATION
     Dosage: 40 MG, DAILY
     Route: 065
  7. ATACAND [Concomitant]
     Indication: PRODUCT USED FOR UNKNOWN INDICATION
     Dosage: UNK
     Route: 065
  8. HJERTEMAGNYL                       /00228701/ [Concomitant]
     Indication: PRODUCT USED FOR UNKNOWN INDICATION
     Dosage: 75 MG, DAILY
     Route: 065

REACTIONS (3)
  - Petit mal epilepsy [Not Recovered/Not Resolved]
  - Memory impairment [Not Recovered/Not Resolved]
  - Erectile dysfunction [Not Recovered/Not Resolved]
